FAERS Safety Report 7397868-6 (Version None)
Quarter: 2011Q2

REPORT INFORMATION
  Report Type: 
  Country: None (occurrence: None)
  Receive Date: 20110401
  Receipt Date: 20110401
  Transmission Date: 20111010
  Serious: Yes (Hospitalization)
  Sender: FDA-Public Use
  Company Number: None

PATIENT
  Age: 21 Year
  Sex: Male
  Weight: 57.8 kg

DRUGS (17)
  1. BACTRIM [Concomitant]
  2. PEG-ASPARAGINASE [Concomitant]
  3. HYDRALAZINE [Concomitant]
  4. VORIZONAZOLE [Concomitant]
  5. SENNA [Concomitant]
  6. DEXAMETHASONE [Concomitant]
  7. FENTANYL [Concomitant]
  8. BACLOFEN [Concomitant]
  9. LORAZEPAM [Concomitant]
  10. PANTOPRAZOLE [Concomitant]
  11. BORTEZOMIB [Suspect]
     Indication: ACUTE LYMPHOCYTIC LEUKAEMIA RECURRENT
     Dosage: DAYS 1, 4 8 AND 11 IV
     Route: 042
  12. HYDROMORPHONE HCL [Concomitant]
  13. ONDANSETRON [Concomitant]
  14. SIMETHICONE [Concomitant]
  15. DOXORUBICIN [Concomitant]
  16. ACETAMINOPHEN [Concomitant]
  17. VINCRISTINE [Concomitant]

REACTIONS (7)
  - BEDRIDDEN [None]
  - DECUBITUS ULCER [None]
  - PAIN IN EXTREMITY [None]
  - ASTHENIA [None]
  - DYSGRAPHIA [None]
  - GAIT DISTURBANCE [None]
  - PERIPHERAL SENSORIMOTOR NEUROPATHY [None]
